FAERS Safety Report 16310657 (Version 1)
Quarter: 2019Q2

REPORT INFORMATION
  Report Type: Report from Study
  Country: FR (occurrence: FR)
  Receive Date: 20190514
  Receipt Date: 20190514
  Transmission Date: 20190711
  Serious: Yes (Death, Hospitalization)
  Sender: FDA-Public Use
  Company Number: FR-MYLANLABS-2019M1044906

PATIENT
  Age: 58 Year
  Sex: Female

DRUGS (3)
  1. DILTIAZEM. [Suspect]
     Active Substance: DILTIAZEM
     Indication: HYPERTENSION
     Dosage: 200 MILLIGRAM, QD
     Route: 048
     Dates: start: 19950103
  2. BENFLUOREX [Concomitant]
     Active Substance: BENFLUOREX
     Dosage: DOSE AS USED: 300 MG PO
     Route: 048
  3. NAFTIDROFURYL [Concomitant]
     Active Substance: NAFRONYL
     Dosage: DOSE AS USED: 600 MG PO
     Route: 048

REACTIONS (1)
  - Acute kidney injury [Fatal]

NARRATIVE: CASE EVENT DATE: 1995
